FAERS Safety Report 6781311-1 (Version None)
Quarter: 2010Q2

REPORT INFORMATION
  Report Type: 
  Country: None (occurrence: None)
  Receive Date: 20100621
  Receipt Date: 20100611
  Transmission Date: 20101027
  Serious: Yes (Hospitalization)
  Sender: FDA-Public Use
  Company Number: PHHO2010GB08843

PATIENT
  Sex: Male
  Weight: 88 kg

DRUGS (7)
  1. ZOLEDRONATE T29581+SOLINJ+BM [Suspect]
     Indication: METASTASES TO BONE
     Dosage: 4MG
     Route: 042
     Dates: start: 20100526
  2. DOCETAXEL [Suspect]
     Indication: METASTASES TO BONE
     Dosage: 150MG
     Route: 042
     Dates: start: 20100526
  3. ZOLADEX [Concomitant]
  4. CALCIUM CARBONATE [Concomitant]
  5. VITAMIN D [Concomitant]
  6. ONDANSETRON [Concomitant]
  7. PREDNISOLONE [Concomitant]

REACTIONS (4)
  - DECREASED APPETITE [None]
  - MUCOSAL INFLAMMATION [None]
  - NEUTROPENIA [None]
  - ORAL PAIN [None]
